FAERS Safety Report 6596518-6 (Version None)
Quarter: 2010Q1

REPORT INFORMATION
  Report Type: 
  Country: None (occurrence: None)
  Receive Date: 20100222
  Receipt Date: 20100222
  Transmission Date: 20100710
  Serious: Yes (Hospitalization)
  Sender: FDA-Public Use
  Company Number: None

PATIENT
  Sex: Male
  Weight: 92.5 kg

DRUGS (2)
  1. ALIMTA [Suspect]
     Indication: NON-SMALL CELL LUNG CANCER
     Dosage: 500 MG/M2 D1 Q 21 DAYS IV
     Route: 042
     Dates: start: 20091216, end: 20091216
  2. ABRAXANE [Suspect]
     Indication: NON-SMALL CELL LUNG CANCER
     Dosage: 260MG/M2 D1 Q 21 DAYS I.V.
     Route: 042
     Dates: start: 20091216, end: 20091216

REACTIONS (7)
  - CHILLS [None]
  - COUGH [None]
  - DYSPNOEA [None]
  - INFECTION [None]
  - MYALGIA [None]
  - PNEUMONIA [None]
  - PYREXIA [None]
